FAERS Safety Report 11688404 (Version 2)
Quarter: 2015Q4

REPORT INFORMATION
  Report Type: Report from Study
  Country: AR (occurrence: AR)
  Receive Date: 20151101
  Receipt Date: 20151116
  Transmission Date: 20160304
  Serious: Yes (Other)
  Sender: FDA-Public Use
  Company Number: PHHY2015AR141751

PATIENT
  Age: 44 Year
  Sex: Female

DRUGS (5)
  1. URSODESOXYCHOLIC ACID [Concomitant]
     Indication: PRODUCT USED FOR UNKNOWN INDICATION
     Route: 065
  2. ESTROGEN NOS W/PROGESTERONE [Concomitant]
     Indication: AMENORRHOEA
     Route: 065
  3. ACETYLSALICYLIC ACID [Concomitant]
     Active Substance: ASPIRIN
     Indication: PRODUCT USED FOR UNKNOWN INDICATION
     Dosage: 100 MG, QD
     Route: 065
  4. DESFERAL [Suspect]
     Active Substance: DEFEROXAMINE MESYLATE
     Indication: THALASSAEMIA BETA
     Dosage: FOR 14 HOURS AT NIGHT
     Route: 041
  5. VITAMIN D [Concomitant]
     Active Substance: CHOLECALCIFEROL
     Indication: NUTRITIONAL SUPPLEMENTATION
     Route: 065

REACTIONS (3)
  - Hepatic neoplasm [Not Recovered/Not Resolved]
  - Hepatic cirrhosis [Unknown]
  - Arrhythmia [Unknown]

NARRATIVE: CASE EVENT DATE: 2004
